FAERS Safety Report 4350892-X (Version None)
Quarter: 2004Q2

REPORT INFORMATION
  Report Type: 
  Country: None (occurrence: None)
  Receive Date: 20040427
  Receipt Date: 20040420
  Transmission Date: 20050107
  Serious: Yes (Death)
  Sender: FDA-Public Use
  Company Number: 2004-115340-NL

PATIENT
  Age: 67 Year
  Sex: Female

DRUGS (4)
  1. MIRTAZAPINE [Suspect]
     Dosage: 45 MG
     Route: 048
  2. LITHIUM CARBONATE [Concomitant]
  3. OXAZEPAM [Concomitant]
  4. SLEEPING PILLS [Concomitant]

REACTIONS (4)
  - DROWNING [None]
  - MALAISE [None]
  - SOMNOLENCE [None]
  - SYNCOPE [None]
